FAERS Safety Report 15322270 (Version 1)
Quarter: 2018Q3

REPORT INFORMATION
  Report Type: Spontaneous
  Country: FR (occurrence: FR)
  Receive Date: 20180827
  Receipt Date: 20180827
  Transmission Date: 20181010
  Serious: Yes (Other)
  Sender: FDA-Public Use
  Company Number: PHHY2018FR050849

PATIENT
  Age: 5 Year
  Sex: Male

DRUGS (6)
  1. AMPHOTERICINE B, LIPOSOME [Concomitant]
     Active Substance: AMPHOTERICIN B
     Indication: MENINGITIS HISTOPLASMA
     Dosage: 6 MG/KG, UNK
     Route: 065
  2. DARUNAVIR [Interacting]
     Active Substance: DARUNAVIR
     Indication: HIV INFECTION
     Dosage: 1 DF, Q12H (DARUNAVIR: 600 MG; RITONAVIR: 100 MG)
     Route: 065
  3. MARAVIROC [Concomitant]
     Active Substance: MARAVIROC
     Indication: HIV INFECTION
     Dosage: 300 MG, QD
     Route: 065
  4. ABACAVIR. [Concomitant]
     Active Substance: ABACAVIR
     Indication: HIV INFECTION
     Dosage: UNK UNK, QD
     Route: 065
  5. ITRACONAZOLE. [Interacting]
     Active Substance: ITRACONAZOLE
     Dosage: 300 MG, Q8H
     Route: 048
  6. ITRACONAZOLE. [Suspect]
     Active Substance: ITRACONAZOLE
     Indication: MENINGITIS HISTOPLASMA
     Dosage: 200 MG, Q12H
     Route: 048

REACTIONS (6)
  - Toxicity to various agents [Recovering/Resolving]
  - Neuropsychiatric symptoms [Recovering/Resolving]
  - Drug interaction [Unknown]
  - Somnolence [Recovering/Resolving]
  - Diarrhoea [Recovered/Resolved]
  - Confusional state [Recovered/Resolved]
